FAERS Safety Report 20695984 (Version 2)
Quarter: 2022Q2

REPORT INFORMATION
  Report Type: Spontaneous
  Country: US (occurrence: US)
  Receive Date: 20220411
  Receipt Date: 20220608
  Transmission Date: 20220721
  Serious: Yes (Other)
  Sender: FDA-Public Use
  Company Number: US-TEVA-2022-US-2026145

PATIENT
  Age: 57 Year
  Sex: Female

DRUGS (16)
  1. VALSARTAN [Suspect]
     Active Substance: VALSARTAN
     Indication: Hypertension
     Dates: start: 20150812, end: 2015
  2. VALSARTAN [Suspect]
     Active Substance: VALSARTAN
     Indication: Hypertension
     Dates: start: 20160111, end: 20160422
  3. VALSARTAN [Suspect]
     Active Substance: VALSARTAN
     Dates: start: 20150414, end: 20151215
  4. VALSARTAN [Suspect]
     Active Substance: VALSARTAN
     Indication: Hypertension
     Dates: start: 20160520, end: 20161031
  5. VALSARTAN [Suspect]
     Active Substance: VALSARTAN
     Dates: start: 20170106, end: 20170808
  6. VALSARTAN [Suspect]
     Active Substance: VALSARTAN
     Dates: start: 20170916, end: 20180605
  7. VALSARTAN [Suspect]
     Active Substance: VALSARTAN
     Dates: start: 20160422
  8. VALSARTAN [Suspect]
     Active Substance: VALSARTAN
     Indication: Hypertension
     Dates: start: 20150130, end: 2015
  9. VALSARTAN [Suspect]
     Active Substance: VALSARTAN
     Dates: start: 20141113
  10. VALSARTAN [Suspect]
     Active Substance: VALSARTAN
     Dates: start: 20140711, end: 2014
  11. DIOVAN [Suspect]
     Active Substance: VALSARTAN
     Indication: Hypertension
     Dosage: 80 MILLIGRAM DAILY;
     Dates: start: 20120224, end: 20140610
  12. ESTRADIOL [Concomitant]
     Active Substance: ESTRADIOL
     Indication: Menopause
     Dosage: 0.025MG PATCH.
     Dates: start: 2015
  13. ESTRADIOL [Concomitant]
     Active Substance: ESTRADIOL
     Indication: Hormone therapy
  14. POTASSIUM CHLORIDE [Concomitant]
     Active Substance: POTASSIUM CHLORIDE
     Indication: Mineral supplementation
     Dosage: 30 MILLIEQUIVALENTS DAILY;
     Dates: start: 20120224, end: 2019
  15. VIVELLE-DOT [Concomitant]
     Active Substance: ESTRADIOL
     Indication: Hormone therapy
     Dosage: 0.1MG PATCH
     Dates: start: 20120224, end: 20150202
  16. SPIRONOLACTONE [Concomitant]
     Active Substance: SPIRONOLACTONE
     Indication: Supplementation therapy
     Dates: start: 2014, end: 2016

REACTIONS (1)
  - Adenocarcinoma of colon [Unknown]
